FAERS Safety Report 21358503 (Version 1)
Quarter: 2022Q3

REPORT INFORMATION
  Report Type: Other
  Country: US (occurrence: US)
  Receive Date: 20220921
  Receipt Date: 20220921
  Transmission Date: 20221027
  Serious: Yes (Other)
  Sender: FDA-Public Use
  Company Number: US-APOTEX-2022AP012988

PATIENT
  Sex: Male

DRUGS (2)
  1. RANITIDINE [Suspect]
     Active Substance: RANITIDINE
     Indication: Product used for unknown indication
     Dosage: UNK
     Route: 048
     Dates: start: 1986, end: 2017
  2. ZANTAC [Suspect]
     Active Substance: RANITIDINE HYDROCHLORIDE
     Indication: Product used for unknown indication
     Dosage: UNK
     Route: 048
     Dates: start: 1986, end: 2017

REACTIONS (1)
  - Prostate cancer [Unknown]
